FAERS Safety Report 10200732 (Version 1)
Quarter: 2014Q2

REPORT INFORMATION
  Report Type: Spontaneous
  Country: US (occurrence: None)
  Receive Date: 20140523
  Receipt Date: 20140523
  Transmission Date: 20141212
  Serious: No
  Sender: FDA-Public Use
  Company Number: None

PATIENT
  Age: 70 Year
  Sex: Female
  Weight: 72.58 kg

DRUGS (2)
  1. SPIRIVA [Suspect]
     Indication: RESPIRATORY DISORDER
     Route: 055
     Dates: start: 20140116, end: 20140317
  2. COMBIVENT RESPIMAT 20MCG/100MCG BOEHRINGER INGELHEIM [Suspect]
     Indication: RESPIRATORY DISORDER
     Route: 055

REACTIONS (1)
  - Dry mouth [None]
